APPROVED DRUG PRODUCT: IMIPRAMINE HYDROCHLORIDE
Active Ingredient: IMIPRAMINE HYDROCHLORIDE
Strength: 25MG
Dosage Form/Route: TABLET;ORAL
Application: A089497 | Product #001
Applicant: PAR PHARMACEUTICAL INC
Approved: Jul 14, 1987 | RLD: No | RS: No | Type: DISCN